FAERS Safety Report 5100147-0 (Version None)
Quarter: 2006Q3

REPORT INFORMATION
  Report Type: 
  Country: None (occurrence: None)
  Receive Date: 20060908
  Receipt Date: 20041026
  Transmission Date: 20061208
  Serious: Yes (Hospitalization, Other)
  Sender: FDA-Public Use
  Company Number: US-ABBOTT-04P-163-0279170-00

PATIENT
  Sex: Male
  Weight: 88.53 kg

DRUGS (5)
  1. HUMIRA [Suspect]
     Indication: ANKYLOSING SPONDYLITIS
     Route: 058
     Dates: start: 20040629, end: 20041013
  2. HUMIRA [Suspect]
     Route: 058
     Dates: start: 20041123
  3. PREDNISONE TAB [Concomitant]
     Indication: ANKYLOSING SPONDYLITIS
     Dates: start: 20040604
  4. VICODIN [Concomitant]
     Indication: ANKYLOSING SPONDYLITIS
     Dates: start: 20040101
  5. CELECOXIB [Concomitant]
     Indication: ANKYLOSING SPONDYLITIS
     Dates: start: 20040520

REACTIONS (2)
  - PNEUMOTHORAX [None]
  - RESPIRATORY DISTRESS [None]
